FAERS Safety Report 8075317-2 (Version None)
Quarter: 2012Q1

REPORT INFORMATION
  Report Type: 
  Country: None (occurrence: None)
  Receive Date: 20120120
  Receipt Date: 20120113
  Transmission Date: 20120608
  Serious: Yes (Other)
  Sender: FDA-Public Use
  Company Number: ACO_28985_2012

PATIENT
  Sex: Female

DRUGS (6)
  1. CYMBALTA [Concomitant]
  2. AMPYRA [Suspect]
     Indication: PRODUCT USED FOR UNKNOWN INDICATION
     Dosage: 10 MG, BID, ORAL
     Route: 048
     Dates: start: 20100501
  3. AMBIEN [Concomitant]
  4. XANAX (APLRAZOLAM) [Concomitant]
  5. TRAMADOL HCL [Concomitant]
  6. TIAZAC [Concomitant]

REACTIONS (1)
  - CONVULSION [None]
